FAERS Safety Report 9770369 (Version 1)
Quarter: 2013Q4

REPORT INFORMATION
  Report Type: Spontaneous
  Country: IT (occurrence: IT)
  Receive Date: 20131218
  Receipt Date: 20131218
  Transmission Date: 20140711
  Serious: Yes (Hospitalization)
  Sender: FDA-Public Use
  Company Number: IT-SA-2013SA129169

PATIENT
  Age: 80 Year
  Sex: Male

DRUGS (5)
  1. LASIX [Suspect]
     Indication: PRODUCT USED FOR UNKNOWN INDICATION
     Dosage: DOSE:1 UNIT(S)
     Route: 048
     Dates: start: 20130920, end: 20130928
  2. EUTIROX [Concomitant]
     Dosage: STRENGTH: 100 MG
     Route: 048
  3. FORZAAR [Concomitant]
     Dosage: STRENGTH: 100 MG PLUS 25 MG
     Route: 048
  4. OMNIC [Concomitant]
     Dosage: FORM: PROLONGED RELEASE TABLET, FILM COATED?STRENGTH: 0.4 MG
     Route: 048
  5. ASCRIPTIN [Concomitant]
     Route: 048

REACTIONS (4)
  - Presyncope [Unknown]
  - Confusional state [Unknown]
  - Tachyarrhythmia [Unknown]
  - Asthenia [Unknown]
